FAERS Safety Report 8123679-X (Version None)
Quarter: 2012Q1

REPORT INFORMATION
  Report Type: 
  Country: None (occurrence: None)
  Receive Date: 20120208
  Receipt Date: 20120206
  Transmission Date: 20120608
  Serious: Yes (Life-Threatening, Hospitalization)
  Sender: FDA-Public Use
  Company Number: PHEH2011US010134

PATIENT
  Sex: Female

DRUGS (12)
  1. AROMASIN [Concomitant]
     Dosage: UNK UKN, UNK
  2. AFINITOR [Suspect]
  3. ANTIBIOTICS [Suspect]
  4. CALCIUM [Concomitant]
     Dosage: UNK UKN, UNK
  5. TASIGNA [Suspect]
     Indication: BREAST CANCER
     Dosage: UNK UKN, UNK
  6. ASCORBIC ACID [Concomitant]
     Dosage: UNK UKN, UNK
  7. AFINITOR [Suspect]
     Dosage: 10 MG, UNK
  8. EXEMESTANE [Concomitant]
     Dosage: UNK UKN, UNK
  9. SYNTHROID [Concomitant]
     Dosage: 175 UG, UNK
  10. ZOLOFT [Concomitant]
     Dosage: 50 MG, UNK
  11. CALCITRIOL [Concomitant]
     Dosage: 25 UG, UNK
  12. VITAMIN-MINERAL COMPOUND TAB [Concomitant]
     Dosage: UNK UKN, UNK

REACTIONS (11)
  - OXYGEN SATURATION DECREASED [None]
  - TERMINAL STATE [None]
  - HEADACHE [None]
  - PATHOGEN RESISTANCE [None]
  - DYSPNOEA [None]
  - CHILLS [None]
  - PNEUMONITIS [None]
  - ASTHENIA [None]
  - PYREXIA [None]
  - DECREASED APPETITE [None]
  - VOMITING [None]
